FAERS Safety Report 6591006-5 (Version None)
Quarter: 2010Q1

REPORT INFORMATION
  Report Type: 
  Country: None (occurrence: None)
  Receive Date: 20100212
  Receipt Date: 20100126
  Transmission Date: 20100710
  Serious: Yes (Other)
  Sender: FDA-Public Use
  Company Number: 2010S1000586

PATIENT
  Age: 53 Year
  Sex: Female

DRUGS (6)
  1. PHOSPHOSODA FLAVOR NOT SPECIFIED [Suspect]
     Indication: COLONOSCOPY
     Dosage: 90 ML; TOTAL; PO
     Route: 048
     Dates: start: 20030705, end: 20030705
  2. ACCUPRIL [Concomitant]
  3. PRILOSEC [Concomitant]
  4. ZANTAC [Concomitant]
  5. ESTRADIOL [Concomitant]
  6. SOMA [Concomitant]

REACTIONS (2)
  - BLOOD CREATININE INCREASED [None]
  - RENAL DISORDER [None]
